FAERS Safety Report 23048962 (Version 1)
Quarter: 2023Q4

REPORT INFORMATION
  Report Type: Spontaneous
  Country: NL (occurrence: NL)
  Receive Date: 20231010
  Receipt Date: 20231010
  Transmission Date: 20240109
  Serious: Yes (Other)
  Sender: FDA-Public Use
  Company Number: None

PATIENT
  Age: 63 Year
  Sex: Female
  Weight: 102 kg

DRUGS (2)
  1. OXYCODONE [Suspect]
     Active Substance: OXYCODONE
     Indication: Joint prosthesis user
     Dosage: 2 DOSAGE FORMS DAILY;  OXYCODON CAPSULE 10MG / BRAND NAME NOT SPECIFIED, 1 PIECE TWICE A DAY
     Dates: start: 20230904
  2. FLUCLOXACILLIN [Suspect]
     Active Substance: FLUCLOXACILLIN
     Indication: Joint prosthesis user
     Dosage: 12 GRAM DAILY; 12 GRAMS PER 24 HOURS, FLUCLOXACILLIN PDR V INJVLST 1000MG / FLOXAPEN INJECTION POWDE
     Dates: start: 20230906, end: 20230906

REACTIONS (1)
  - Renal impairment [Recovering/Resolving]
